FAERS Safety Report 6146092-3 (Version None)
Quarter: 2009Q2

REPORT INFORMATION
  Report Type: 
  Country: None (occurrence: None)
  Receive Date: 20090407
  Receipt Date: 20090327
  Transmission Date: 20091009
  Serious: Yes (Hospitalization)
  Sender: FDA-Public Use
  Company Number: GB-AMGEN-UK337767

PATIENT
  Age: 54 Year
  Sex: Male
  Weight: 84 kg

DRUGS (5)
  1. NEULASTA [Suspect]
     Indication: CHEMOTHERAPY
     Route: 058
     Dates: start: 20080625, end: 20080625
  2. TAXOL [Concomitant]
  3. ISOPHOSPHAMIDE [Concomitant]
  4. CISPLATIN [Concomitant]
     Route: 065
     Dates: start: 20080623
  5. ETOPOSIDE [Concomitant]
     Route: 065
     Dates: start: 20080623

REACTIONS (3)
  - DRUG INEFFECTIVE [None]
  - NEUTROPENIC SEPSIS [None]
  - NEUTROPHIL COUNT ABNORMAL [None]
